FAERS Safety Report 19313891 (Version 1)
Quarter: 2021Q2

REPORT INFORMATION
  Report Type: Spontaneous
  Country: US (occurrence: US)
  Receive Date: 20210527
  Receipt Date: 20210527
  Transmission Date: 20210717
  Serious: No
  Sender: FDA-Public Use
  Company Number: US-JNJFOC-A-NJ2015-119806

PATIENT
  Age: 51 Year
  Sex: Male

DRUGS (2)
  1. RIOCIGUAT. [Concomitant]
     Active Substance: RIOCIGUAT
  2. OPSUMIT [Suspect]
     Active Substance: MACITENTAN
     Indication: PULMONARY ARTERIAL HYPERTENSION
     Dosage: 10 MG (TITER), UNK
     Route: 048
     Dates: start: 201504

REACTIONS (2)
  - Gastrooesophageal reflux disease [Unknown]
  - Depression [Unknown]
